FAERS Safety Report 17829732 (Version 2)
Quarter: 2020Q2

REPORT INFORMATION
  Report Type: Spontaneous
  Country: SE (occurrence: SE)
  Receive Date: 20200527
  Receipt Date: 20200605
  Transmission Date: 20200714
  Serious: Yes (Other)
  Sender: FDA-Public Use
  Company Number: SE-MYLANLABS-2020M1051189

PATIENT
  Age: 15 Year
  Sex: Male

DRUGS (8)
  1. MORPHINE [Suspect]
     Active Substance: MORPHINE
     Indication: HEADACHE
  2. MORPHINE [Suspect]
     Active Substance: MORPHINE
     Indication: MYALGIA
  3. MORPHINE [Suspect]
     Active Substance: MORPHINE
     Indication: MYALGIA
  4. MORPHINE [Suspect]
     Active Substance: MORPHINE
     Indication: PAIN
  5. MORPHINE [Suspect]
     Active Substance: MORPHINE
     Indication: ABDOMINAL PAIN
     Dosage: UNK (^ON DEMAND^ DOSES)
     Route: 042
     Dates: start: 1998, end: 199901
  6. MORPHINE [Suspect]
     Active Substance: MORPHINE
     Indication: HEADACHE
  7. MORPHINE [Suspect]
     Active Substance: MORPHINE
     Indication: ABDOMINAL PAIN
     Dosage: UNK
     Route: 048
     Dates: start: 1998, end: 199901
  8. MORPHINE [Suspect]
     Active Substance: MORPHINE
     Indication: PAIN

REACTIONS (1)
  - Neurotoxicity [Unknown]
